FAERS Safety Report 9929371 (Version 3)
Quarter: 2014Q2

REPORT INFORMATION
  Report Type: Spontaneous
  Country: BR (occurrence: BR)
  Receive Date: 20140227
  Receipt Date: 20140404
  Transmission Date: 20141212
  Serious: Yes (Life-Threatening, Hospitalization, Other)
  Sender: FDA-Public Use
  Company Number: PHHY2014BR022240

PATIENT
  Age: 39 Year
  Sex: Female
  Weight: 60 kg

DRUGS (1)
  1. GILENYA [Suspect]
     Indication: MULTIPLE SCLEROSIS
     Dosage: 0.5 MG, QD
     Route: 048
     Dates: start: 20120308, end: 20140216

REACTIONS (6)
  - Thymoma malignant [Not Recovered/Not Resolved]
  - Respiratory failure [Unknown]
  - Dyspnoea [Unknown]
  - Tumour necrosis [Not Recovered/Not Resolved]
  - Muscular weakness [Not Recovered/Not Resolved]
  - Myasthenia gravis [Not Recovered/Not Resolved]
